FAERS Safety Report 8628332 (Version 3)
Quarter: 2012Q4

REPORT INFORMATION
  Report Type: 
  Country: US (occurrence: US)
  Receive Date: 20120621
  Receipt Date: 20120919
  Transmission Date: 20130627
  Serious: Yes (Other)
  Sender: FDA-Public Use
  Company Number: US-ASTRAZENECA-2012SE39536

PATIENT
  Age: 63 Year
  Sex: Female

DRUGS (2)
  1. NEXIUM [Suspect]
     Route: 048
  2. CRESTOR [Suspect]
     Route: 048

REACTIONS (9)
  - Gait disturbance [Unknown]
  - Accident [Unknown]
  - Upper limb fracture [Unknown]
  - Fall [Unknown]
  - Upper limb fracture [Unknown]
  - Dyspnoea [Unknown]
  - Asthenia [Unknown]
  - Adverse drug reaction [Unknown]
  - Muscular weakness [Unknown]
